FAERS Safety Report 18569884 (Version 1)
Quarter: 2020Q4

REPORT INFORMATION
  Report Type: Spontaneous
  Country: US (occurrence: US)
  Receive Date: 20201201
  Receipt Date: 20201201
  Transmission Date: 20210114
  Serious: Yes (Other)
  Sender: FDA-Public Use
  Company Number: None

PATIENT

DRUGS (1)
  1. COPPERTONE SPORT LIP BALM SPF 50 [Suspect]
     Active Substance: AVOBENZONE\HOMOSALATE\OCTISALATE\OXYBENZONE\PETROLATUM
     Dates: start: 20200914, end: 20200914

REACTIONS (6)
  - Nasal congestion [None]
  - Lip swelling [None]
  - Lip pain [None]
  - Product lot number issue [None]
  - Drug monitoring procedure not performed [None]
  - Rhinalgia [None]

NARRATIVE: CASE EVENT DATE: 20200914
